FAERS Safety Report 5981191-8 (Version None)
Quarter: 2008Q4

REPORT INFORMATION
  Report Type: 
  Country: None (occurrence: None)
  Receive Date: 20081205
  Receipt Date: 20081203
  Transmission Date: 20090506
  Serious: Yes (Hospitalization)
  Sender: FDA-Public Use
  Company Number: B0547422A

PATIENT
  Age: 57 Year
  Sex: Male

DRUGS (3)
  1. SAWACILLIN [Suspect]
     Indication: SYPHILIS
     Dosage: 500MG TWICE PER DAY
     Route: 048
     Dates: start: 20070330, end: 20070416
  2. COTRIM [Suspect]
     Dosage: 2TAB TWICE PER DAY
     Route: 048
     Dates: start: 20070424, end: 20070508
  3. TALION [Concomitant]

REACTIONS (5)
  - ERYTHEMA MULTIFORME [None]
  - GENERAL PHYSICAL HEALTH DETERIORATION [None]
  - MALAISE [None]
  - ORAL DISORDER [None]
  - PYREXIA [None]
